FAERS Safety Report 5677112-8 (Version None)
Quarter: 2008Q1

REPORT INFORMATION
  Report Type: 
  Country: None (occurrence: None)
  Receive Date: 20080324
  Receipt Date: 20080312
  Transmission Date: 20080703
  Serious: Yes (Other)
  Sender: FDA-Public Use
  Company Number: FR-AMGEN-US260536

PATIENT
  Sex: Female
  Weight: 70 kg

DRUGS (7)
  1. ENBREL [Suspect]
     Indication: RHEUMATOID ARTHRITIS
     Route: 058
     Dates: start: 20070506, end: 20080110
  2. TOPALGIC [Concomitant]
     Route: 048
  3. TEMESTA [Concomitant]
     Route: 048
  4. LEVOTHYROXINE SODIUM [Concomitant]
     Route: 048
  5. ZOLOFT [Concomitant]
     Route: 048
  6. CORTANCYL [Concomitant]
     Route: 048
  7. VASTAREL [Concomitant]
     Dosage: UNKNOWN
     Route: 065

REACTIONS (1)
  - ERYTHEMA NODOSUM [None]
